FAERS Safety Report 25299619 (Version 1)
Quarter: 2025Q2

REPORT INFORMATION
  Report Type: Spontaneous
  Country: US (occurrence: US)
  Receive Date: 20250512
  Receipt Date: 20250512
  Transmission Date: 20250716
  Serious: Yes (Death, Other)
  Sender: TAKEDA
  Company Number: US-TAKEDA-2025TUS043908

PATIENT
  Sex: Male

DRUGS (1)
  1. VYVANSE [Suspect]
     Active Substance: LISDEXAMFETAMINE DIMESYLATE
     Indication: Attention deficit hyperactivity disorder
     Dosage: UNK UNK, QD

REACTIONS (3)
  - Road traffic accident [Fatal]
  - Alcohol poisoning [Unknown]
  - Amphetamines positive [Unknown]

NARRATIVE: CASE EVENT DATE: 20230101
